FAERS Safety Report 5127654-9 (Version None)
Quarter: 2006Q4

REPORT INFORMATION
  Report Type: 
  Country: None (occurrence: None)
  Receive Date: 20061016
  Receipt Date: 20061004
  Transmission Date: 20070319
  Serious: Yes (Other)
  Sender: FDA-Public Use
  Company Number: PHBS2006ZA15541

PATIENT
  Sex: Male

DRUGS (2)
  1. SANDIMMUNE [Suspect]
     Indication: GRAFT VERSUS HOST DISEASE
     Route: 065
  2. CELLCEPT [Concomitant]

REACTIONS (4)
  - MUSCLE SPASMS [None]
  - OESOPHAGEAL SPASM [None]
  - PAIN [None]
  - TRISMUS [None]
